FAERS Safety Report 25661547 (Version 1)
Quarter: 2025Q3

REPORT INFORMATION
  Report Type: Spontaneous
  Country: US (occurrence: None)
  Receive Date: 20250808
  Receipt Date: 20250808
  Transmission Date: 20251021
  Serious: No
  Sender: Harrow Health
  Company Number: US-HARROW-HAR-2025-US-00579

PATIENT

DRUGS (1)
  1. IHEEZO [Suspect]
     Active Substance: CHLOROPROCAINE HYDROCHLORIDE
     Route: 047

REACTIONS (1)
  - Off label use [Unknown]
